FAERS Safety Report 25302309 (Version 1)
Quarter: 2025Q2

REPORT INFORMATION
  Report Type: Spontaneous
  Country: US (occurrence: None)
  Receive Date: 20250512
  Receipt Date: 20250512
  Transmission Date: 20250716
  Serious: Yes (Disabling)
  Sender: FDA-CTU
  Company Number: None

PATIENT
  Age: 67 Year
  Sex: Female
  Weight: 54.9 kg

DRUGS (11)
  1. RECLAST [Suspect]
     Active Substance: ZOLEDRONIC ACID
     Indication: Osteoporosis
     Route: 042
     Dates: start: 20220419
  2. FLEXERIL [Concomitant]
     Active Substance: CYCLOBENZAPRINE HYDROCHLORIDE
  3. Cosemin [Concomitant]
  4. FISH OIL [Concomitant]
     Active Substance: FISH OIL
  5. COENZYME Q10 [Concomitant]
     Active Substance: DIETARY SUPPLEMENT\UBIDECARENONE
  6. CALCIUM\VITAMIN D [Concomitant]
     Active Substance: CALCIUM\VITAMIN D
  7. PROBIOTICS NOS [Concomitant]
     Active Substance: PROBIOTICS NOS
  8. TYLENOL [Concomitant]
     Active Substance: ACETAMINOPHEN
  9. CANNABIDIOL [Concomitant]
     Active Substance: CANNABIDIOL
  10. SLEEP GUMMIES [Concomitant]
     Active Substance: AMINO ACIDS\BARLEY MALT
  11. TUMS [Concomitant]
     Active Substance: CALCIUM CARBONATE

REACTIONS (6)
  - Pyrexia [None]
  - Myalgia [None]
  - Oropharyngeal pain [None]
  - Headache [None]
  - Sinus congestion [None]
  - Infusion related reaction [None]

NARRATIVE: CASE EVENT DATE: 20250508
